FAERS Safety Report 12891217 (Version 1)
Quarter: 2016Q4

REPORT INFORMATION
  Report Type: Spontaneous
  Country: US (occurrence: US)
  Receive Date: 20161026
  Receipt Date: 20161026
  Transmission Date: 20170207
  Serious: No
  Sender: FDA-Public Use
  Company Number: None

PATIENT
  Age: 71 Year
  Sex: Female
  Weight: 70.37 kg

DRUGS (5)
  1. DEXAMETHASONE. [Suspect]
     Active Substance: DEXAMETHASONE
     Indication: SINUSITIS
     Route: 048
     Dates: start: 20160916, end: 20160921
  2. OMEPRAZOLE. [Concomitant]
     Active Substance: OMEPRAZOLE
  3. CEFDINIR. [Suspect]
     Active Substance: CEFDINIR
     Indication: PNEUMONIA
  4. FLONASE [Concomitant]
     Active Substance: FLUTICASONE PROPIONATE
  5. TYLENOL [Concomitant]
     Active Substance: ACETAMINOPHEN

REACTIONS (7)
  - Constipation [None]
  - Nervousness [None]
  - Anxiety [None]
  - Pneumonia [None]
  - Back disorder [None]
  - Insomnia [None]
  - Neuropathy peripheral [None]

NARRATIVE: CASE EVENT DATE: 20160919
